FAERS Safety Report 5581584-7 (Version None)
Quarter: 2008Q1

REPORT INFORMATION
  Report Type: 
  Country: None (occurrence: None)
  Receive Date: 20080102
  Receipt Date: 20080102
  Transmission Date: 20080703
  Serious: Yes (Hospitalization, Other)
  Sender: FDA-Public Use
  Company Number: None

PATIENT
  Age: 38 Year
  Sex: Female
  Weight: 58.9676 kg

DRUGS (2)
  1. ULTRAM [Suspect]
     Indication: BACK PAIN
     Dosage: 50 MG. DAILY PO
     Route: 048
     Dates: start: 20050416, end: 20071231
  2. XANAX [Suspect]
     Indication: ANXIETY
     Dosage: 1 MG. WEEKLY PO
     Route: 048
     Dates: start: 20060128, end: 20071230

REACTIONS (5)
  - DEPRESSION [None]
  - DRUG DEPENDENCE [None]
  - DRUG WITHDRAWAL SYNDROME [None]
  - MENTAL DISORDER [None]
  - PERFORMANCE STATUS DECREASED [None]
